FAERS Safety Report 15697694 (Version 2)
Quarter: 2018Q4

REPORT INFORMATION
  Report Type: Spontaneous
  Country: DE (occurrence: DE)
  Receive Date: 20181207
  Receipt Date: 20181227
  Transmission Date: 20190205
  Serious: Yes (Hospitalization, Other)
  Sender: FDA-Public Use
  Company Number: DE-AMGEN-DEUSP2018174233

PATIENT
  Age: 60 Year
  Sex: Male

DRUGS (4)
  1. FENTANYL. [Concomitant]
     Active Substance: FENTANYL
     Dosage: 1 PATCH EVERY 3 DAYS
     Route: 062
  2. ENBREL [Suspect]
     Active Substance: ETANERCEPT
     Indication: ANKYLOSING SPONDYLITIS
     Dosage: 25 MG, DAILY
     Route: 058
     Dates: start: 20180801, end: 201811
  3. ETORICOXIB. [Concomitant]
     Active Substance: ETORICOXIB
     Dosage: UNK
  4. CELECOXIB. [Concomitant]
     Active Substance: CELECOXIB
     Dosage: 200 MG, 2X/DAY (1-0-1)
     Dates: end: 201809

REACTIONS (11)
  - Headache [Unknown]
  - Arteriosclerosis [Unknown]
  - Low density lipoprotein increased [Unknown]
  - Product use issue [Unknown]
  - Dysuria [Unknown]
  - Visual impairment [Unknown]
  - Cerebrovascular accident [Unknown]
  - Epilepsy [Unknown]
  - Transient ischaemic attack [Unknown]
  - Hypoaesthesia [Unknown]
  - Pain in extremity [Unknown]

NARRATIVE: CASE EVENT DATE: 20180801
